FAERS Safety Report 6010677-5 (Version None)
Quarter: 2008Q4

REPORT INFORMATION
  Report Type: 
  Country: None (occurrence: None)
  Receive Date: 20081216
  Receipt Date: 20081208
  Transmission Date: 20090506
  Serious: Yes (Life-Threatening, Hospitalization)
  Sender: FDA-Public Use
  Company Number: TPG2008A01435

PATIENT
  Age: 65 Year
  Sex: Female

DRUGS (2)
  1. PIOGLITAZONE HCL [Suspect]
     Indication: AMYOTROPHIC LATERAL SCLEROSIS
     Dosage: 45 MG PER ORAL
     Route: 048
     Dates: start: 20081021
  2. RILUZOLE (RILUZOLE) [Concomitant]

REACTIONS (1)
  - DEEP VEIN THROMBOSIS [None]
